FAERS Safety Report 15215833 (Version 1)
Quarter: 2018Q3

REPORT INFORMATION
  Report Type: Spontaneous
  Country: US (occurrence: US)
  Receive Date: 20180703
  Receipt Date: 20180703
  Transmission Date: 20181010
  Serious: No
  Sender: FDA-Public Use
  Company Number: None

PATIENT
  Age: 62 Year
  Sex: Male

DRUGS (1)
  1. MAVYRET [Suspect]
     Active Substance: GLECAPREVIR\PIBRENTASVIR
     Dates: start: 20180703, end: 20180703

REACTIONS (2)
  - Gastrointestinal polyp haemorrhage [None]
  - Haematochezia [None]

NARRATIVE: CASE EVENT DATE: 20180703
